FAERS Safety Report 8721479 (Version 9)
Quarter: 2015Q1

REPORT INFORMATION
  Report Type: Report from Study
  Country: BR (occurrence: BR)
  Receive Date: 20120813
  Receipt Date: 20150309
  Transmission Date: 20150721
  Serious: Yes (Hospitalization, Other)
  Sender: FDA-Public Use
  Company Number: BR-ROCHE-1100206

PATIENT
  Age: 57 Year
  Sex: Female
  Weight: 78 kg

DRUGS (15)
  1. PREDNISONE. [Concomitant]
     Active Substance: PREDNISONE
  2. METFORMIN [Concomitant]
     Active Substance: METFORMIN HYDROCHLORIDE
  3. GABAPENTIN. [Concomitant]
     Active Substance: GABAPENTIN
  4. MABTHERA [Suspect]
     Active Substance: RITUXIMAB
     Dosage: LATEST INJECTION WAS ON 07/AUG/2012.
     Route: 042
     Dates: start: 20110512
  5. AMLODIPIN [Concomitant]
     Active Substance: AMLODIPINE BESYLATE
  6. HYDROCHLOROTHIAZIDE. [Concomitant]
     Active Substance: HYDROCHLOROTHIAZIDE
  7. SALICYLIC ACID. [Concomitant]
     Active Substance: SALICYLIC ACID
  8. MABTHERA [Suspect]
     Active Substance: RITUXIMAB
     Indication: RHEUMATOID ARTHRITIS
     Dosage: MOST RECENT INFUSION ON 04/JUN/2014
     Route: 042
     Dates: start: 20110812
  9. CLOPIDOGREL [Concomitant]
     Active Substance: CLOPIDOGREL BISULFATE
  10. CORTISONE [Suspect]
     Active Substance: CORTISONE\HYDROCORTISONE
     Indication: PRODUCT USED FOR UNKNOWN INDICATION
     Dosage: 1 AMPOULE PER WEEK
     Route: 065
  11. ATENOLOL. [Concomitant]
     Active Substance: ATENOLOL
  12. PARACETAMOL [Concomitant]
     Active Substance: ACETAMINOPHEN
  13. LOSARTAN [Concomitant]
     Active Substance: LOSARTAN
  14. OMEPRAZOLE. [Concomitant]
     Active Substance: OMEPRAZOLE
  15. ROSUVASTATIN [Concomitant]
     Active Substance: ROSUVASTATIN

REACTIONS (12)
  - Neuropathy peripheral [Unknown]
  - Influenza [Recovering/Resolving]
  - Blood test abnormal [Not Recovered/Not Resolved]
  - Rheumatoid arthritis [Unknown]
  - Nausea [Unknown]
  - Arthralgia [Not Recovered/Not Resolved]
  - Plasma cell myeloma [Not Recovered/Not Resolved]
  - Extremity necrosis [Unknown]
  - Wound [Recovered/Resolved]
  - Diabetes mellitus [Not Recovered/Not Resolved]
  - Cardiac disorder [Unknown]
  - Wound infection [Recovered/Resolved]

NARRATIVE: CASE EVENT DATE: 201311
